FAERS Safety Report 16802102 (Version 3)
Quarter: 2019Q3

REPORT INFORMATION
  Report Type: Report from Study
  Country: US (occurrence: US)
  Receive Date: 20190912
  Receipt Date: 20190924
  Transmission Date: 20191005
  Serious: Yes (Hospitalization)
  Sender: FDA-Public Use
  Company Number: US-ROCHE-2368298

PATIENT
  Age: 48 Year
  Sex: Male
  Weight: 92 kg

DRUGS (30)
  1. OXYCODONE [Concomitant]
     Active Substance: OXYCODONE
     Indication: TUMOUR PAIN
     Route: 048
     Dates: start: 20190201
  2. DEMEROL [Concomitant]
     Active Substance: MEPERIDINE HYDROCHLORIDE
     Route: 042
     Dates: start: 20190723, end: 20190723
  3. IBUPROFEN. [Concomitant]
     Active Substance: IBUPROFEN
     Route: 048
     Dates: start: 20190716, end: 20190716
  4. TYLENOL [Concomitant]
     Active Substance: ACETAMINOPHEN
     Route: 048
     Dates: start: 20190716, end: 20190716
  5. MARIJUANA [Concomitant]
     Active Substance: CANNABIS SATIVA SUBSP. INDICA TOP
     Indication: INSOMNIA
     Route: 048
     Dates: start: 201905
  6. ACETAMINOPHEN. [Concomitant]
     Active Substance: ACETAMINOPHEN
     Route: 048
     Dates: start: 20190813, end: 20190813
  7. GABAPENTIN. [Concomitant]
     Active Substance: GABAPENTIN
     Indication: NEUROPATHY PERIPHERAL
     Route: 048
     Dates: start: 201711
  8. ZOFRAN [Concomitant]
     Active Substance: ONDANSETRON HYDROCHLORIDE
     Route: 042
     Dates: start: 20190723, end: 20190723
  9. ACETAMINOPHEN. [Concomitant]
     Active Substance: ACETAMINOPHEN
     Route: 048
     Dates: start: 20190716, end: 20190716
  10. RO7198457 (RNA PERSONALISED CANCER VACCINE) [Suspect]
     Active Substance: RO-7198457
     Indication: METASTATIC NEOPLASM
     Dosage: LAST STUDY DRUG RO7198457 ADMINISTERED PRIOR TO SAE ONSET: 38 UG, 23/JUL/2019
     Route: 042
     Dates: start: 20190716
  11. LEVOTHYROXINE. [Concomitant]
     Active Substance: LEVOTHYROXINE
     Indication: HYPOTHYROIDISM
     Route: 048
     Dates: start: 201712
  12. PEPCID [Concomitant]
     Active Substance: FAMOTIDINE
     Route: 042
     Dates: start: 20190716, end: 20190716
  13. NORMAL SALINE [Concomitant]
     Active Substance: SODIUM CHLORIDE
     Route: 042
     Dates: start: 20190716, end: 20190716
  14. OMEPRAZOLE. [Concomitant]
     Active Substance: OMEPRAZOLE
     Indication: DYSPEPSIA
     Route: 048
     Dates: start: 20190201
  15. PEPCID [Concomitant]
     Active Substance: FAMOTIDINE
     Route: 042
     Dates: start: 20190723, end: 20190723
  16. ACETAMINOPHEN. [Concomitant]
     Active Substance: ACETAMINOPHEN
     Route: 048
     Dates: start: 20190827, end: 20190827
  17. NORMAL SALINE [Concomitant]
     Active Substance: SODIUM CHLORIDE
     Route: 042
     Dates: start: 20190820, end: 20190820
  18. ACETAMINOPHEN. [Concomitant]
     Active Substance: ACETAMINOPHEN
     Route: 048
     Dates: start: 20190723, end: 20190723
  19. DEMEROL [Concomitant]
     Active Substance: MEPERIDINE HYDROCHLORIDE
     Route: 042
     Dates: start: 20190716, end: 20190716
  20. ATIVAN [Concomitant]
     Active Substance: LORAZEPAM
     Route: 042
     Dates: start: 20190723, end: 20190723
  21. ATEZOLIZUMAB. [Suspect]
     Active Substance: ATEZOLIZUMAB
     Indication: METASTATIC NEOPLASM
     Dosage: DOSE OF LAST STUDY DRUG ATEZOLIZUMAB ADMINISTERED PRIOR TO AE ONSET: 1200 MG, 23/JUL/2019
     Route: 042
     Dates: start: 20190716
  22. ATENOLOL. [Concomitant]
     Active Substance: ATENOLOL
     Indication: VENTRICULAR EXTRASYSTOLES
     Route: 048
     Dates: start: 2002
  23. KLONOPIN [Concomitant]
     Active Substance: CLONAZEPAM
     Indication: INSOMNIA
     Route: 048
     Dates: start: 201904
  24. ZOFRAN [Concomitant]
     Active Substance: ONDANSETRON HYDROCHLORIDE
     Route: 042
     Dates: start: 20190716, end: 20190716
  25. TYLENOL WITH CODEINE [Concomitant]
     Active Substance: ACETAMINOPHEN\CODEINE PHOSPHATE
     Route: 048
     Dates: start: 20190806, end: 20190821
  26. NORMAL SALINE [Concomitant]
     Active Substance: SODIUM CHLORIDE
     Route: 042
     Dates: start: 20190723, end: 20190723
  27. NORMAL SALINE [Concomitant]
     Active Substance: SODIUM CHLORIDE
     Route: 042
     Dates: start: 20190813, end: 20190813
  28. ATIVAN [Concomitant]
     Active Substance: LORAZEPAM
     Route: 042
     Dates: start: 20190716, end: 20190716
  29. NORMAL SALINE [Concomitant]
     Active Substance: SODIUM CHLORIDE
     Route: 042
     Dates: start: 20190827, end: 20190827
  30. ACETAMINOPHEN. [Concomitant]
     Active Substance: ACETAMINOPHEN
     Route: 048
     Dates: start: 20190820, end: 20190820

REACTIONS (1)
  - Systemic immune activation [Recovered/Resolved]

NARRATIVE: CASE EVENT DATE: 20190728
